FAERS Safety Report 8501922-2 (Version None)
Quarter: 2012Q3

REPORT INFORMATION
  Report Type: 
  Country: None (occurrence: None)
  Receive Date: 20120711
  Receipt Date: 20120706
  Transmission Date: 20120928
  Serious: Yes (Hospitalization)
  Sender: FDA-Public Use
  Company Number: PHHY2012JP051365

PATIENT
  Sex: Female
  Weight: 42 kg

DRUGS (6)
  1. COLIOPAN [Concomitant]
     Indication: ABDOMINAL PAIN
     Dosage: 3 DF, TID
     Route: 048
     Dates: start: 20120604, end: 20120604
  2. CEFDINIR [Concomitant]
     Indication: PERITONITIS
     Dosage: 100 MG, DAILY
     Route: 048
     Dates: start: 20120601, end: 20120604
  3. CEFAZOLIN SODIUM [Concomitant]
     Indication: BOWEL MOVEMENT IRREGULARITY
     Dosage: 3 G,
     Route: 048
     Dates: start: 20120604, end: 20120604
  4. ROCEPHIN [Concomitant]
     Indication: DIVERTICULUM INTESTINAL
     Route: 041
     Dates: start: 20120601, end: 20120604
  5. VOLTAREN [Suspect]
     Indication: PAIN MANAGEMENT
     Dosage: 25 MG, TID
     Route: 048
     Dates: start: 20120601, end: 20120604
  6. MUCOSTA [Concomitant]
     Indication: GASTRIC DISORDER
     Dosage: 100 MG, TID
     Route: 048
     Dates: start: 20120601, end: 20120604

REACTIONS (5)
  - CHOLANGITIS [None]
  - RASH GENERALISED [None]
  - ABDOMINAL PAIN UPPER [None]
  - LIVER DISORDER [None]
  - PRURITUS [None]
